FAERS Safety Report 8031353-3 (Version None)
Quarter: 2012Q1

REPORT INFORMATION
  Report Type: 
  Country: None (occurrence: None)
  Receive Date: 20120109
  Receipt Date: 20111227
  Transmission Date: 20120608
  Serious: Yes (Other)
  Sender: FDA-Public Use
  Company Number: ES-CELGENEUS-144-50794-11123441

PATIENT
  Age: 67 Year
  Sex: Male

DRUGS (3)
  1. VIDAZA [Suspect]
     Route: 065
     Dates: start: 20110513, end: 20111103
  2. RED BLOOD CELLS [Concomitant]
     Route: 065
     Dates: start: 20110501, end: 20111001
  3. ANTIBIOTICS [Concomitant]
     Route: 050
     Dates: start: 20111001, end: 20111001

REACTIONS (3)
  - TOXICITY TO VARIOUS AGENTS [None]
  - DIARRHOEA [None]
  - NEUTROPENIA [None]
